FAERS Safety Report 12242884 (Version 1)
Quarter: 2016Q2

REPORT INFORMATION
  Report Type: Spontaneous
  Country: US (occurrence: US)
  Receive Date: 20160406
  Receipt Date: 20160406
  Transmission Date: 20160815
  Serious: Yes (Other)
  Sender: FDA-Public Use
  Company Number: US-WARNER CHILCOTT, LLC-1050287

PATIENT
  Age: 37 Year

DRUGS (8)
  1. REMICADE [Suspect]
     Active Substance: INFLIXIMAB
     Route: 065
  2. VEDOLIZUMAB [Concomitant]
     Active Substance: VEDOLIZUMAB
  3. PREDNISONE. [Concomitant]
     Active Substance: PREDNISONE
  4. ASACOL [Suspect]
     Active Substance: MESALAMINE
     Route: 048
  5. METHOTREXATE (METHOTREXATE SODIUM) [Suspect]
     Active Substance: METHOTREXATE SODIUM
  6. PENTASA [Suspect]
     Active Substance: MESALAMINE
     Route: 048
  7. HUMIRA [Suspect]
     Active Substance: ADALIMUMAB
     Route: 058
  8. LIALDA [Suspect]
     Active Substance: MESALAMINE
     Route: 048

REACTIONS (7)
  - Drug hypersensitivity [Unknown]
  - Lupus-like syndrome [Unknown]
  - Autoimmune hepatitis [Unknown]
  - Serum sickness [Unknown]
  - Drug specific antibody present [Unknown]
  - Drug ineffective [Unknown]
  - Pyrexia [Unknown]
